FAERS Safety Report 15538334 (Version 1)
Quarter: 2018Q4

REPORT INFORMATION
  Report Type: Spontaneous
  Country: DE (occurrence: DE)
  Receive Date: 20181022
  Receipt Date: 20181022
  Transmission Date: 20190205
  Serious: Yes (Other)
  Sender: FDA-Public Use
  Company Number: DE-MYLANLABS-2018M1078437

PATIENT
  Age: 15 Year
  Sex: Male

DRUGS (7)
  1. ARSENIC TRIOXIDE. [Suspect]
     Active Substance: ARSENIC TRIOXIDE
     Indication: EWING^S SARCOMA
     Dosage: THIRD THERAPY REGIME: ARSENIC TRIOXIDE 0.1 MG/KG P.O. (REDUCED DOSAGE)
     Route: 048
  2. TRIAMTERENE. [Suspect]
     Active Substance: TRIAMTERENE
     Indication: EWING^S SARCOMA
     Dosage: SECOND THERAPY REGIME: TRIAMTERENE  25 MG P.O. (REDUCED DOSAGE)
     Route: 048
  3. CRIZOTINIB [Suspect]
     Active Substance: CRIZOTINIB
     Indication: PRODUCT USED FOR UNKNOWN INDICATION
     Dosage: FOURTH THERAPY REGIME: CRIZOTINIB 500 MG P.O. (STANDARD DOSAGE)
     Route: 048
  4. TRETINOIN. [Suspect]
     Active Substance: TRETINOIN
     Indication: EWING^S SARCOMA
     Dosage: SECOND THERAPY REGIME: TRETINOIN 25 MG/M^2 P.O. (REDUCED DOSAGE)
     Route: 048
  5. SORAFENIB [Suspect]
     Active Substance: SORAFENIB
     Indication: EWING^S SARCOMA
     Dosage: SECOND THERAPY REGIME: SORAFENIB 400 MG P.O. (REDUCED DOSAGE)
     Route: 048
  6. VORINOSTAT [Suspect]
     Active Substance: VORINOSTAT
     Indication: EWING^S SARCOMA
     Dosage: SECOND THERAPY REGIME: VERINOSTAT 400 MG P.O. (STANDARD DOSAGE)
     Route: 048
  7. VITAMIN E                          /00110501/ [Suspect]
     Active Substance: TOCOPHEROL
     Indication: EWING^S SARCOMA
     Dosage: THIRD THERAPY REGIME: VITAMIN E 400 IE P.O. (STANDARD DOSAGE)
     Route: 048

REACTIONS (8)
  - Product use in unapproved indication [Unknown]
  - Dyspnoea [Unknown]
  - Lymphopenia [Unknown]
  - Bone pain [Unknown]
  - Activated partial thromboplastin time prolonged [Unknown]
  - Anaemia [Unknown]
  - Pneumonia [Unknown]
  - Thrombocytopenia [Unknown]
